FAERS Safety Report 7409082-6 (Version None)
Quarter: 2011Q2

REPORT INFORMATION
  Report Type: 
  Country: None (occurrence: None)
  Receive Date: 20110412
  Receipt Date: 20110401
  Transmission Date: 20111010
  Serious: Yes (Death)
  Sender: FDA-Public Use
  Company Number: MX-SANOFI-AVENTIS-2011SA019924

PATIENT
  Age: 81 Year
  Sex: Female

DRUGS (1)
  1. INSULIN GLARGINE [Suspect]
     Route: 058
     Dates: start: 20060101, end: 20101024

REACTIONS (1)
  - ACUTE MYOCARDIAL INFARCTION [None]
